FAERS Safety Report 7618938-0 (Version None)
Quarter: 2011Q3

REPORT INFORMATION
  Report Type: 
  Country: None (occurrence: None)
  Receive Date: 20110718
  Receipt Date: 20110712
  Transmission Date: 20111222
  Serious: Yes (Death, Hospitalization)
  Sender: FDA-Public Use
  Company Number: US-CELGENEUS-163-21880-11071273

PATIENT
  Age: 80 Year
  Sex: Male

DRUGS (11)
  1. DOXEPIN [Concomitant]
     Route: 065
  2. DEXAMETHASONE [Concomitant]
     Indication: MULTIPLE MYELOMA
     Route: 065
     Dates: start: 20100301
  3. REVLIMID [Suspect]
     Dosage: 5 MILLIGRAM
     Route: 048
     Dates: start: 20100405, end: 20100401
  4. ATENOLOL [Concomitant]
     Route: 065
  5. AMIODARONE HCL [Concomitant]
     Route: 065
  6. FLUOXETINE [Concomitant]
     Route: 065
  7. LORAZEPAM [Concomitant]
     Route: 065
  8. DOCUSATE [Concomitant]
     Route: 065
  9. ZOLPIDEM [Concomitant]
     Route: 065
  10. REVLIMID [Suspect]
     Indication: MULTIPLE MYELOMA
     Dosage: 10 MILLIGRAM
     Route: 048
     Dates: start: 20100301, end: 20100301
  11. ALLOPURINOL [Concomitant]
     Route: 065

REACTIONS (3)
  - DEATH [None]
  - ATRIAL FIBRILLATION [None]
  - RASH [None]
